FAERS Safety Report 6056595-8 (Version None)
Quarter: 2009Q1

REPORT INFORMATION
  Report Type: 
  Country: None (occurrence: None)
  Receive Date: 20090126
  Receipt Date: 20090112
  Transmission Date: 20090719
  Serious: Yes (Death, Hospitalization)
  Sender: FDA-Public Use
  Company Number: KV200900072

PATIENT
  Age: 62 Year
  Sex: Male
  Weight: 72.6 kg

DRUGS (2)
  1. MORPHINE SULFATE [Suspect]
     Indication: PAIN
     Dosage: 60 MG, BID, ORAL
     Route: 048
     Dates: start: 20080401
  2. NUMEROUS UNSPECIFIED MEDICATIONS [Concomitant]

REACTIONS (5)
  - DYSPNOEA [None]
  - HYPOTENSION [None]
  - MYOCARDIAL INFARCTION [None]
  - PRODUCT QUALITY ISSUE [None]
  - URINARY INCONTINENCE [None]
